FAERS Safety Report 25926822 (Version 1)
Quarter: 2025Q4

REPORT INFORMATION
  Report Type: Spontaneous
  Country: US (occurrence: None)
  Receive Date: 20251015
  Receipt Date: 20251015
  Transmission Date: 20260117
  Serious: Yes (Hospitalization)
  Sender: FDA-CTU
  Company Number: None

PATIENT
  Age: 23 Month
  Sex: Male
  Weight: 14.4 kg

DRUGS (3)
  1. BLEOMYCIN [Suspect]
     Active Substance: BLEOMYCIN SULFATE
     Dosage: OTHER QUANTITY : 8.4 UNIT;?
     Dates: end: 20230807
  2. CARBOPLATIN [Suspect]
     Active Substance: CARBOPLATIN
     Dates: end: 20230807
  3. ETOPOSIDE [Suspect]
     Active Substance: ETOPOSIDE

REACTIONS (2)
  - Upper respiratory tract infection [None]
  - Respiratory failure [None]

NARRATIVE: CASE EVENT DATE: 20230824
